FAERS Safety Report 18086352 (Version 3)
Quarter: 2020Q3

REPORT INFORMATION
  Report Type: Spontaneous
  Country: US (occurrence: US)
  Receive Date: 20200729
  Receipt Date: 20200825
  Transmission Date: 20201103
  Serious: Yes (Other)
  Sender: FDA-Public Use
  Company Number: US-GLAXOSMITHKLINE-US2020140256

PATIENT
  Age: 90 Year
  Sex: Female

DRUGS (1)
  1. ANORO ELLIPTA [Suspect]
     Active Substance: UMECLIDINIUM BROMIDE\VILANTEROL TRIFENATATE
     Indication: PRODUCT USED FOR UNKNOWN INDICATION
     Dosage: UNK
     Dates: start: 2019, end: 20200718

REACTIONS (7)
  - Accidental overdose [Unknown]
  - Urinary retention [Not Recovered/Not Resolved]
  - Therapeutic product effect delayed [Unknown]
  - Adverse drug reaction [Unknown]
  - Pollakiuria [Unknown]
  - Pain in extremity [Unknown]
  - Throat irritation [Unknown]

NARRATIVE: CASE EVENT DATE: 202007
